FAERS Safety Report 13834853 (Version 1)
Quarter: 2017Q3

REPORT INFORMATION
  Report Type: Spontaneous
  Country: US (occurrence: US)
  Receive Date: 20170804
  Receipt Date: 20170804
  Transmission Date: 20171127
  Serious: Yes (Life-Threatening, Hospitalization)
  Sender: FDA-Public Use
  Company Number: None

PATIENT
  Age: 40 Year
  Sex: Female

DRUGS (6)
  1. HALOPERIDOL. [Suspect]
     Active Substance: HALOPERIDOL
     Dosage: 2001 2 50^S 2012 1 100+ TABS 2012 2 100S + TABS 2016 2 100^S + TABS?2 WKS. / 1 MTH. - 7 DAYS -
     Route: 048
     Dates: start: 2001, end: 2016
  2. PROLIXIN [Concomitant]
     Active Substance: FLUPHENAZINE HYDROCHLORIDE
  3. ZYPREXA [Concomitant]
     Active Substance: OLANZAPINE
  4. HALDOL [Concomitant]
     Active Substance: HALOPERIDOL
  5. RISPERDAL CONSTA [Concomitant]
     Active Substance: RISPERIDONE
  6. BENADRYL [Concomitant]
     Active Substance: DIPHENHYDRAMINE HYDROCHLORIDE

REACTIONS (3)
  - Blood prolactin abnormal [None]
  - Sexual dysfunction [None]
  - Psychotic disorder [None]
